FAERS Safety Report 12405613 (Version 3)
Quarter: 2016Q2

REPORT INFORMATION
  Report Type: Spontaneous
  Country: JP (occurrence: JP)
  Receive Date: 20160526
  Receipt Date: 20160630
  Transmission Date: 20160815
  Serious: Yes (Hospitalization, Other)
  Sender: FDA-Public Use
  Company Number: JP-AMGEN-JPNSP2016067185

PATIENT
  Age: 69 Year
  Sex: Female
  Weight: 50 kg

DRUGS (12)
  1. G-LASTA [Suspect]
     Active Substance: PEGFILGRASTIM
     Indication: COLONY STIMULATING FACTOR PROPHYLAXIS
     Dosage: 3.6 MG, QD
     Route: 058
     Dates: start: 20150224, end: 20150224
  2. ENDOXAN                            /00021101/ [Suspect]
     Active Substance: CYCLOPHOSPHAMIDE
     Indication: BREAST CANCER
     Dosage: 700 MG, 1X/3WEEKS
     Route: 041
     Dates: start: 20141222, end: 20150223
  3. EMEND [Concomitant]
     Active Substance: APREPITANT
     Indication: PROPHYLAXIS OF NAUSEA AND VOMITING
     Dosage: 12.5 MG, 1X/3WEEKS
     Route: 048
     Dates: start: 20141222, end: 20150223
  4. DECADRON [Concomitant]
     Active Substance: DEXAMETHASONE
     Indication: PROPHYLAXIS OF NAUSEA AND VOMITING
     Dosage: 4 MG, 3 DAYS EVERY 3 WEEKS
     Route: 048
     Dates: start: 20141223, end: 20150225
  5. 5-FU [Suspect]
     Active Substance: FLUOROURACIL
     Indication: BREAST CANCER
     Dosage: 700 MG, 1X/3WEEKS
     Route: 041
     Dates: start: 20141222, end: 20150223
  6. LOXOPROFEN [Concomitant]
     Active Substance: LOXOPROFEN
     Indication: ANTIPYRESIS
     Dosage: 60 MG, UNK
     Route: 048
     Dates: start: 20150304, end: 20150318
  7. CIPROXAN                           /00697202/ [Concomitant]
     Active Substance: CIPROFLOXACIN
     Indication: FEBRILE NEUTROPENIA
     Dosage: 300 MG, 11 TIMES IN TOTAL
     Route: 041
     Dates: start: 20150311, end: 20150316
  8. NEU-UP [Suspect]
     Active Substance: UNSPECIFIED INGREDIENT
     Indication: FEBRILE NEUTROPENIA
     Dosage: 50 MUG, QD
     Route: 058
     Dates: start: 20150304, end: 20150308
  9. MAXIPIME [Concomitant]
     Active Substance: CEFEPIME HYDROCHLORIDE
     Indication: FEBRILE NEUTROPENIA
     Dosage: 1 G, 18 TIMES IN TOTAL
     Route: 041
     Dates: start: 20150304, end: 20150313
  10. EPIRUBICIN HYDROCHLORIDE. [Suspect]
     Active Substance: EPIRUBICIN HYDROCHLORIDE
     Indication: BREAST CANCER
     Dosage: 140 MG, 1X/3WEEKS
     Route: 041
     Dates: start: 20141222, end: 20150223
  11. LENDORMIN [Concomitant]
     Active Substance: BROTIZOLAM
     Indication: INSOMNIA
     Dosage: 0.25 MG, UNK
     Route: 048
     Dates: start: 20150310, end: 20150330
  12. EMEND [Concomitant]
     Active Substance: APREPITANT
     Dosage: 80 MG, 2 DAYS EVERY 3 WEEKS
     Route: 048
     Dates: start: 20141223, end: 20150225

REACTIONS (2)
  - Lung disorder [Recovered/Resolved]
  - Febrile neutropenia [Recovered/Resolved]

NARRATIVE: CASE EVENT DATE: 20150304
